FAERS Safety Report 5014267-2 (Version None)
Quarter: 2006Q2

REPORT INFORMATION
  Report Type: 
  Country: None (occurrence: None)
  Receive Date: 20060414
  Receipt Date: 20060109
  Transmission Date: 20061013
  Serious: No
  Sender: FDA-Public Use
  Company Number: 2005SP004292

PATIENT
  Age: 60 Year
  Sex: Female
  Weight: 72.5755 kg

DRUGS (4)
  1. LUNESTA [Suspect]
     Indication: INSOMNIA
     Dosage: 3 MG HS ORAL
     Route: 048
     Dates: start: 20050101, end: 20050101
  2. SYNTHROID [Concomitant]
  3. SALICYLIC ACID [Concomitant]
  4. PRILOSEC [Concomitant]

REACTIONS (1)
  - DYSGEUSIA [None]
